FAERS Safety Report 11228781 (Version 1)
Quarter: 2015Q2

REPORT INFORMATION
  Report Type: Spontaneous
  Country: US (occurrence: US)
  Receive Date: 20150630
  Receipt Date: 20150630
  Transmission Date: 20150821
  Serious: No
  Sender: FDA-Public Use
  Company Number: US-MEDA-2015060018

PATIENT
  Sex: Male

DRUGS (18)
  1. SYNTHROID [Concomitant]
     Active Substance: LEVOTHYROXINE SODIUM
  2. MULTIVITAMINS [Concomitant]
     Active Substance: VITAMINS
     Indication: VITAMIN SUPPLEMENTATION
  3. METHOTREXATE [Concomitant]
     Active Substance: METHOTREXATE
  4. ALPHA LIPOIC ACID [Concomitant]
     Active Substance: .ALPHA.-LIPOIC ACID
  5. COENZYME Q10 [Concomitant]
     Active Substance: UBIDECARENONE
  6. MUSE [Suspect]
     Active Substance: ALPROSTADIL
     Indication: ERECTILE DYSFUNCTION
     Route: 066
     Dates: start: 201505
  7. COREG [Concomitant]
     Active Substance: CARVEDILOL
  8. GINSENG [Concomitant]
     Active Substance: ASIAN GINSENG
  9. SELENIUM [Concomitant]
     Active Substance: SELENIUM
  10. HUMIRA [Concomitant]
     Active Substance: ADALIMUMAB
  11. REGULOID [Concomitant]
     Active Substance: PSYLLIUM HUSK
  12. CANDESARTAN [Concomitant]
     Active Substance: CANDESARTAN
  13. VITAMIN B12 [Concomitant]
     Active Substance: CYANOCOBALAMIN
     Indication: VITAMIN SUPPLEMENTATION
  14. VITAMIN D [Concomitant]
     Active Substance: CHOLECALCIFEROL
     Indication: VITAMIN SUPPLEMENTATION
  15. TYLENOL [Concomitant]
     Active Substance: ACETAMINOPHEN
  16. FISH OIL [Concomitant]
     Active Substance: FISH OIL
  17. NETTLE LEAF TEA [Concomitant]
  18. LIPITOR [Concomitant]
     Active Substance: ATORVASTATIN CALCIUM

REACTIONS (3)
  - Wrong technique in drug usage process [Unknown]
  - Drug ineffective [Unknown]
  - Penile burning sensation [Recovered/Resolved]

NARRATIVE: CASE EVENT DATE: 201505
